FAERS Safety Report 8983237 (Version 1)
Quarter: 2012Q4

REPORT INFORMATION
  Report Type: 
  Country: MX (occurrence: MX)
  Receive Date: 20121224
  Receipt Date: 20121224
  Transmission Date: 20130627
  Serious: Yes (Other)
  Sender: FDA-Public Use
  Company Number: PHHY2012MX119200

PATIENT
  Age: 81 Year
  Sex: Female

DRUGS (6)
  1. ACLASTA [Suspect]
     Indication: OSTEOPOROSIS
     Dosage: 5mg/100 ml annual
     Route: 042
     Dates: start: 201204
  2. PREXIGE [Concomitant]
  3. FLOTAC                                  /CHL/ [Concomitant]
  4. MICCIL [Concomitant]
  5. PARACETAMOL [Concomitant]
  6. CELESTONE                               /NET/ [Concomitant]

REACTIONS (1)
  - Lower limb fracture [Not Recovered/Not Resolved]
